FAERS Safety Report 14310469 (Version 1)
Quarter: 2017Q4

REPORT INFORMATION
  Report Type: Spontaneous
  Country: US (occurrence: US)
  Receive Date: 20171220
  Receipt Date: 20171220
  Transmission Date: 20180321
  Serious: Yes (Other)
  Sender: FDA-Public Use
  Company Number: None

PATIENT
  Age: 43 Year
  Sex: Female
  Weight: 95.4 kg

DRUGS (5)
  1. PRIMROSE OIL [Concomitant]
  2. CONTRAVE [Suspect]
     Active Substance: BUPROPION HYDROCHLORIDE\NALTREXONE HYDROCHLORIDE
     Indication: WEIGHT CONTROL
     Route: 048
  3. PROBIOTICS [Concomitant]
     Active Substance: PROBIOTICS NOS
  4. CONTRAVE [Suspect]
     Active Substance: BUPROPION HYDROCHLORIDE\NALTREXONE HYDROCHLORIDE
     Indication: ANXIETY
     Route: 048
  5. VITAMIN B12 [Concomitant]
     Active Substance: CYANOCOBALAMIN

REACTIONS (12)
  - Withdrawal syndrome [None]
  - Fatigue [None]
  - Dry mouth [None]
  - Decreased appetite [None]
  - Myalgia [None]
  - White blood cell count increased [None]
  - Nausea [None]
  - Dizziness [None]
  - Arthralgia [None]
  - Tinnitus [None]
  - Chills [None]
  - Headache [None]

NARRATIVE: CASE EVENT DATE: 20171127
